FAERS Safety Report 5270900-1 (Version None)
Quarter: 2007Q1

REPORT INFORMATION
  Report Type: 
  Country: None (occurrence: None)
  Receive Date: 20070321
  Receipt Date: 20070309
  Transmission Date: 20070707
  Serious: Yes (Hospitalization)
  Sender: FDA-Public Use
  Company Number: PHHO2007US04525

PATIENT
  Age: 65 Year
  Sex: Male
  Weight: 80 kg

DRUGS (13)
  1. ZOLEDRONIC ACID [Suspect]
  2. SUNITINIB MALATE [Suspect]
     Dosage: 50 MG, UNK
     Route: 048
     Dates: start: 20060412, end: 20060509
  3. PAMIDRONATE DISODIUM [Suspect]
  4. AMLOZEK [Concomitant]
     Dates: start: 20050101
  5. LOKREN [Concomitant]
     Dates: start: 20050101
  6. TIALORID [Concomitant]
     Dates: start: 20050101
  7. MS CONTIN [Concomitant]
     Dates: start: 20050101
  8. POLPRAZOL [Concomitant]
     Dates: start: 20050101
  9. POLY-KARAYA [Concomitant]
     Dates: start: 20050101
  10. CILAZAPRIL [Concomitant]
     Dates: start: 20050101
  11. UROSEPT [Concomitant]
     Dates: start: 20060101
  12. ZOFRAN [Concomitant]
     Dates: start: 20060101
  13. TAMSULOSIN HCL [Concomitant]
     Dates: start: 20060101

REACTIONS (2)
  - GINGIVAL PAIN [None]
  - NO THERAPEUTIC RESPONSE [None]
